FAERS Safety Report 10283834 (Version 2)
Quarter: 2014Q4

REPORT INFORMATION
  Report Type: Spontaneous
  Country: JP (occurrence: None)
  Receive Date: 20140703
  Receipt Date: 20141009
  Transmission Date: 20150528
  Serious: No
  Sender: FDA-Public Use
  Company Number: B1006083A

PATIENT
  Age: 36 Year
  Sex: Female

DRUGS (10)
  1. DIMETHICONE. [Concomitant]
     Active Substance: DIMETHICONE
  2. POTASSIUM ASPARTATE [Concomitant]
     Active Substance: POTASSIUM ASPARTATE
  3. ROMAZEPAM [Concomitant]
  4. PAROXETINE HYDROCHLORIDE. [Suspect]
     Active Substance: PAROXETINE HYDROCHLORIDE
     Indication: DEPRESSION
     Route: 048
     Dates: start: 20140607, end: 20140613
  5. VEGETAMIN-B [Concomitant]
     Active Substance: CHLORPROMAZINE HYDROCHLORIDE\PHENOBARBITAL\PROMETHAZINE
  6. POLYCARBOPHIL CALCIUM [Concomitant]
     Active Substance: CALCIUM POLYCARBOPHIL
  7. FRUSEMIDE [Concomitant]
     Active Substance: FUROSEMIDE
  8. CHINESE MEDICATION [Concomitant]
     Active Substance: UNSPECIFIED INGREDIENT
  9. MIDODRINE HYDROCHOLORIDE [Concomitant]
  10. DOMPERIDONE [Concomitant]
     Active Substance: DOMPERIDONE

REACTIONS (2)
  - Gaze palsy [None]
  - Menstruation delayed [None]

NARRATIVE: CASE EVENT DATE: 20140616
